FAERS Safety Report 13262257 (Version 1)
Quarter: 2017Q1

REPORT INFORMATION
  Report Type: Spontaneous
  Country: FR (occurrence: FR)
  Receive Date: 20170222
  Receipt Date: 20170222
  Transmission Date: 20170428
  Serious: Yes (Life-Threatening)
  Sender: FDA-Public Use
  Company Number: FR-ROCHE-1896510

PATIENT
  Age: 34 Year
  Sex: Female

DRUGS (11)
  1. BISOCE [Concomitant]
     Active Substance: BISOPROLOL
     Route: 048
  2. ORAMORPH [Suspect]
     Active Substance: MORPHINE SULFATE
     Indication: PAIN
     Route: 048
  3. SCOPODERM [Concomitant]
     Active Substance: SCOPOLAMINE
     Route: 003
  4. VALIUM [Suspect]
     Active Substance: DIAZEPAM
     Indication: MUSCLE SPASTICITY
     Route: 048
  5. MORPHINE [Suspect]
     Active Substance: MORPHINE
     Indication: PAIN
     Route: 065
  6. MIRTAZAPINE. [Concomitant]
     Active Substance: MIRTAZAPINE
     Route: 048
  7. LOVENOX [Concomitant]
     Active Substance: ENOXAPARIN SODIUM
     Route: 058
  8. BACLOFENE [Concomitant]
     Active Substance: BACLOFEN
     Route: 048
  9. GAVISCON (ALGINIC ACID) [Concomitant]
     Route: 048
  10. INEXIUM [Concomitant]
     Active Substance: ESOMEPRAZOLE
     Route: 048
  11. MUCOMYSTENDO [Concomitant]
     Active Substance: ACETYLCYSTEINE

REACTIONS (4)
  - Hypercapnia [Recovered/Resolved]
  - Coma [Recovered/Resolved]
  - Somnolence [Recovered/Resolved]
  - Lung disorder [Recovered/Resolved]

NARRATIVE: CASE EVENT DATE: 20160812
